FAERS Safety Report 5574399-7 (Version None)
Quarter: 2007Q4

REPORT INFORMATION
  Report Type: 
  Country: None (occurrence: None)
  Receive Date: 20071226
  Receipt Date: 20071226
  Transmission Date: 20080405
  Serious: No
  Sender: FDA-Public Use
  Company Number: None

PATIENT
  Age: 42 Year
  Sex: Female
  Weight: 88.4514 kg

DRUGS (1)
  1. BUDEPRION XL 300MG TEVA PHARM [Suspect]
     Indication: DEPRESSION
     Dosage: 30 ONE TABLET PER DAY PO
     Route: 048
     Dates: start: 20071125, end: 20071221

REACTIONS (4)
  - ANXIETY [None]
  - IRRITABILITY [None]
  - MOOD ALTERED [None]
  - THERAPEUTIC RESPONSE UNEXPECTED WITH DRUG SUBSTITUTION [None]
